FAERS Safety Report 14804496 (Version 1)
Quarter: 2018Q2

REPORT INFORMATION
  Report Type: Spontaneous
  Country: US (occurrence: US)
  Receive Date: 20180425
  Receipt Date: 20180425
  Transmission Date: 20180711
  Serious: No
  Sender: FDA-Public Use
  Company Number: US-MISSION PHARMACAL COMPANY-2046442

PATIENT
  Age: 29 Year
  Sex: Female

DRUGS (1)
  1. THIOLA [Suspect]
     Active Substance: TIOPRONIN
     Indication: CYSTINURIA
     Dates: start: 20171027

REACTIONS (4)
  - Drug dose omission [Unknown]
  - Pain [Unknown]
  - Drug ineffective [Unknown]
  - Vomiting [Unknown]
